FAERS Safety Report 18931909 (Version 1)
Quarter: 2021Q1

REPORT INFORMATION
  Report Type: Spontaneous
  Country: FR (occurrence: FR)
  Receive Date: 20210223
  Receipt Date: 20210223
  Transmission Date: 20210420
  Serious: Yes (Hospitalization)
  Sender: FDA-Public Use
  Company Number: FR-INCYTE CORPORATION-2021IN001437

PATIENT

DRUGS (1)
  1. JAKAVI [Suspect]
     Active Substance: RUXOLITINIB
     Indication: INTERSTITIAL LUNG DISEASE
     Dosage: 10 MG (5 MG X 2 PER DAY)
     Route: 048
     Dates: start: 20200302, end: 20210121

REACTIONS (2)
  - Product use in unapproved indication [Unknown]
  - Alveolar proteinosis [Recovering/Resolving]

NARRATIVE: CASE EVENT DATE: 20210122
